FAERS Safety Report 5692501-3 (Version None)
Quarter: 2008Q2

REPORT INFORMATION
  Report Type: 
  Country: None (occurrence: None)
  Receive Date: 20080328
  Receipt Date: 20071203
  Transmission Date: 20081010
  Serious: No
  Sender: FDA-Public Use
  Company Number: US-WYE-H01608307

PATIENT
  Age: 74 Year
  Sex: Male
  Weight: 83.99 kg

DRUGS (6)
  1. TORISEL [Suspect]
     Indication: RENAL CELL CARCINOMA
     Dosage: 25 MG 1X PER 1 WK, INTRAVENOUS
     Route: 042
     Dates: start: 20071121
  2. INSULIN HUMULIN 70/30 (INSULIN HUMAN/INSULIN HUMAN INJECTION, ISOPHANE [Concomitant]
  3. BENAZEPRIL HCL [Concomitant]
  4. FLOMAX [Concomitant]
  5. TRAMADOL HCL [Concomitant]
  6. METHIMAZOLE (THIIAMAZOLE) [Concomitant]

REACTIONS (2)
  - RASH ERYTHEMATOUS [None]
  - SKIN BURNING SENSATION [None]
